FAERS Safety Report 6746337-2 (Version None)
Quarter: 2010Q2

REPORT INFORMATION
  Report Type: 
  Country: None (occurrence: None)
  Receive Date: 20100528
  Receipt Date: 20100523
  Transmission Date: 20101027
  Serious: Yes (Hospitalization, Other)
  Sender: FDA-Public Use
  Company Number: US-PFIZER INC-2010053909

PATIENT
  Sex: Female
  Weight: 74.376 kg

DRUGS (20)
  1. IBUPROFEN [Suspect]
     Indication: OSTEOARTHRITIS
     Dosage: UNK
     Route: 048
     Dates: start: 20080424, end: 20100422
  2. NAPROXEN [Suspect]
     Indication: OSTEOARTHRITIS
     Dosage: UNK
     Route: 048
     Dates: start: 20080424, end: 20100422
  3. BLINDED *NO SUBJECT DRUG [Suspect]
     Indication: OSTEOARTHRITIS
     Dosage: UNK
     Route: 048
     Dates: start: 20080424, end: 20100422
  4. BLINDED *PLACEBO [Suspect]
     Indication: OSTEOARTHRITIS
     Dosage: UNK
     Route: 048
     Dates: start: 20080424, end: 20100422
  5. BLINDED CELECOXIB [Suspect]
     Indication: OSTEOARTHRITIS
     Dosage: UNK
     Route: 048
     Dates: start: 20080424, end: 20100422
  6. IBUPROFEN [Suspect]
     Dosage: UNK
     Route: 048
     Dates: start: 20080424, end: 20100422
  7. NAPROXEN [Suspect]
     Dosage: UNK
     Route: 048
     Dates: start: 20080424, end: 20100422
  8. IBUPROFEN [Suspect]
     Indication: RHEUMATOID ARTHRITIS
  9. NAPROXEN [Suspect]
     Indication: RHEUMATOID ARTHRITIS
  10. BLINDED *NO SUBJECT DRUG [Suspect]
     Indication: RHEUMATOID ARTHRITIS
  11. BLINDED *PLACEBO [Suspect]
     Indication: RHEUMATOID ARTHRITIS
  12. BLINDED CELECOXIB [Suspect]
     Indication: RHEUMATOID ARTHRITIS
  13. IBUPROFEN [Suspect]
  14. NAPROXEN [Suspect]
  15. FLAGYL [Suspect]
     Indication: DIVERTICULITIS
     Dosage: 500 MG, 3X/DAY
     Route: 048
     Dates: start: 20100408, end: 20100417
  16. FLAGYL [Suspect]
     Dosage: 1500 MG, UNK
     Route: 048
     Dates: start: 20100408, end: 20100417
  17. CIPROFLOXACIN [Suspect]
     Indication: DIVERTICULITIS
     Dosage: 500 MG, 2X/DAY
     Route: 048
     Dates: start: 20100408, end: 20100417
  18. CIPROFLOXACIN [Suspect]
     Dosage: 100 MG, UNK
     Route: 048
     Dates: start: 20100408, end: 20100417
  19. NEXIUM [Concomitant]
     Indication: PROPHYLAXIS AGAINST GASTROINTESTINAL ULCER
     Dosage: 20 OR 40 MG DAILY
     Route: 048
     Dates: start: 20080424
  20. NEXIUM [Concomitant]
     Dosage: UNK
     Dates: start: 20100424

REACTIONS (1)
  - COLITIS [None]
